FAERS Safety Report 16677328 (Version 1)
Quarter: 2019Q3

REPORT INFORMATION
  Report Type: Spontaneous
  Country: DE (occurrence: DE)
  Receive Date: 20190807
  Receipt Date: 20190807
  Transmission Date: 20191004
  Serious: Yes (Hospitalization)
  Sender: FDA-Public Use
  Company Number: DE-009507513-1908DEU000818

PATIENT
  Age: 66 Year
  Sex: Female

DRUGS (2)
  1. TEMODAL [Suspect]
     Active Substance: TEMOZOLOMIDE
     Indication: BRAIN NEOPLASM
     Dosage: 140 MG, UNK
     Route: 048
     Dates: start: 20190602, end: 2019
  2. TEMODAL [Suspect]
     Active Substance: TEMOZOLOMIDE
     Dosage: 180 MG, UNK
     Route: 048
     Dates: start: 2019

REACTIONS (5)
  - Swelling face [Recovered/Resolved]
  - Pruritus generalised [Unknown]
  - Rash vesicular [Unknown]
  - Urticaria [Recovered/Resolved]
  - Pruritus [Recovered/Resolved]

NARRATIVE: CASE EVENT DATE: 2019
